FAERS Safety Report 17016122 (Version 2)
Quarter: 2019Q4

REPORT INFORMATION
  Report Type: Report from Study
  Country: US (occurrence: US)
  Receive Date: 20191111
  Receipt Date: 20191113
  Transmission Date: 20200122
  Serious: No
  Sender: FDA-Public Use
  Company Number: NVSC2019US026546

PATIENT
  Sex: Female
  Weight: 58.96 kg

DRUGS (1)
  1. TREPROSTINIL. [Suspect]
     Active Substance: TREPROSTINIL
     Indication: PULMONARY ARTERIAL HYPERTENSION
     Dosage: 86 NG/KG/MIN, CONT
     Route: 042
     Dates: start: 20190430

REACTIONS (3)
  - Dizziness postural [Unknown]
  - Diarrhoea [Unknown]
  - Device infusion issue [Unknown]
